FAERS Safety Report 6620182-0 (Version None)
Quarter: 2010Q1

REPORT INFORMATION
  Report Type: 
  Country: None (occurrence: None)
  Receive Date: 20100308
  Receipt Date: 20100308
  Transmission Date: 20100710
  Serious: Yes (Life-Threatening, Hospitalization)
  Sender: FDA-Public Use
  Company Number: None

PATIENT
  Sex: Female
  Weight: 63.5036 kg

DRUGS (2)
  1. LEVAQUIN [Suspect]
     Indication: SINUSITIS
     Dosage: 1 DAILY ORAL
     Route: 048
     Dates: start: 20100206
  2. LEVAQUIN [Suspect]
     Indication: SINUSITIS
     Dosage: 1 DAILY ORAL
     Route: 048
     Dates: start: 20100207

REACTIONS (6)
  - BLOOD PRESSURE INCREASED [None]
  - CONVULSION [None]
  - DEHYDRATION [None]
  - DYSGEUSIA [None]
  - HALLUCINATION [None]
  - PAROSMIA [None]
